FAERS Safety Report 20753125 (Version 1)
Quarter: 2022Q2

REPORT INFORMATION
  Report Type: Spontaneous
  Country: US (occurrence: None)
  Receive Date: 20220426
  Receipt Date: 20220426
  Transmission Date: 20220720
  Serious: No
  Sender: FDA-Public Use
  Company Number: US-ROCHE-2709866

PATIENT
  Sex: Female

DRUGS (10)
  1. ESBRIET [Suspect]
     Active Substance: PIRFENIDONE
     Indication: Idiopathic pulmonary fibrosis
     Dosage: TAKE 1 TABLET BY MOUTH 3 TIMES A DAY WITH MEALS FOR 7 DAYS
     Route: 048
  2. ESBRIET [Suspect]
     Active Substance: PIRFENIDONE
     Dosage: TAKE 2 TABLETS BY MOUTH 3 TIMES A DAY WITH MEALS FOR 7 DAYS
     Route: 048
  3. ESBRIET [Suspect]
     Active Substance: PIRFENIDONE
     Dosage: TAKE 3 TABLETS BY MOUTH 3 TIMES A DAY WITH MEALS THEREAFTER
     Route: 048
  4. ESBRIET [Suspect]
     Active Substance: PIRFENIDONE
     Dosage: 2 TABLETS 3 TIMES A DAY
     Route: 048
     Dates: start: 2018
  5. ESBRIET [Suspect]
     Active Substance: PIRFENIDONE
     Indication: Idiopathic pulmonary fibrosis
     Dosage: 1 CAPSULE BY MOUTH THREE TIMES A DAY WITH FOOD., DAY 1 AND DAY 7
     Route: 048
  6. ESBRIET [Suspect]
     Active Substance: PIRFENIDONE
     Dosage: 2 CAPSULES BY MOUTH THREE TIMES A DAY WITH FOOD., DAY 8 THROUGH 14
     Route: 048
  7. ESBRIET [Suspect]
     Active Substance: PIRFENIDONE
     Dosage: 3 CAPSULES BY MOUTH THREE TIMES A DAY WITH FOOD; DAY 15 ONWARDS
     Route: 048
  8. ESBRIET [Suspect]
     Active Substance: PIRFENIDONE
     Indication: Idiopathic pulmonary fibrosis
     Dosage: 2 PILLS PER MEAL
     Route: 048
  9. ESBRIET [Suspect]
     Active Substance: PIRFENIDONE
     Route: 048
     Dates: start: 202102
  10. TYLENOL [Concomitant]
     Active Substance: ACETAMINOPHEN

REACTIONS (16)
  - Muscle spasms [Unknown]
  - Insomnia [Unknown]
  - Myalgia [Unknown]
  - Nausea [Unknown]
  - Abdominal discomfort [Not Recovered/Not Resolved]
  - Vomiting [Unknown]
  - Diarrhoea [Unknown]
  - Lethargy [Unknown]
  - Dizziness [Unknown]
  - Fatigue [Unknown]
  - Hiatus hernia [Unknown]
  - Ill-defined disorder [Unknown]
  - Dyspepsia [Unknown]
  - Impaired quality of life [Unknown]
  - Nausea [Unknown]
  - Abdominal pain upper [Unknown]
